FAERS Safety Report 25758203 (Version 3)
Quarter: 2025Q4

REPORT INFORMATION
  Report Type: Spontaneous
  Country: US (occurrence: US)
  Receive Date: 20250904
  Receipt Date: 20251016
  Transmission Date: 20260118
  Serious: No
  Sender: JOHNSON AND JOHNSON
  Company Number: US-JNJFOC-20250902441

PATIENT
  Age: 60 Year
  Sex: Female

DRUGS (2)
  1. STELARA [Suspect]
     Active Substance: USTEKINUMAB
     Indication: Crohn^s disease
     Route: 058
     Dates: start: 2021
  2. STELARA [Suspect]
     Active Substance: USTEKINUMAB

REACTIONS (2)
  - Device issue [Unknown]
  - Incorrect dose administered by device [Unknown]

NARRATIVE: CASE EVENT DATE: 20250831
